FAERS Safety Report 9601459 (Version 3)
Quarter: 2014Q1

REPORT INFORMATION
  Report Type: Report from Study
  Country: US (occurrence: US)
  Receive Date: 20131007
  Receipt Date: 20140103
  Transmission Date: 20141002
  Serious: Yes (Other)
  Sender: FDA-Public Use
  Company Number: US-ROCHE-1285407

PATIENT
  Sex: Female

DRUGS (7)
  1. XOLAIR [Suspect]
     Indication: ASTHMA
     Route: 058
     Dates: start: 201306
  2. ALLERGY SHOTS [Concomitant]
     Indication: HYPERSENSITIVITY
     Dosage: RED TOPPED VIAL
     Route: 065
     Dates: start: 2011
  3. XYZAL [Concomitant]
     Dosage: EITHER 10MG OR 5MG AT NIGHT
     Route: 065
  4. SINGULAR [Concomitant]
     Route: 065
  5. ALLEGRA [Concomitant]
  6. FLONASE [Concomitant]
  7. BENADRYL (UNITED STATES) [Concomitant]
     Route: 065

REACTIONS (10)
  - Anaphylactic reaction [Unknown]
  - Injection site reaction [Recovered/Resolved]
  - Injection site swelling [Recovered/Resolved]
  - Injection site induration [Recovered/Resolved]
  - Injection site erythema [Recovered/Resolved]
  - Dyspnoea [Recovered/Resolved]
  - Hot flush [Recovered/Resolved]
  - Disorientation [Recovered/Resolved]
  - Psychomotor hyperactivity [Recovered/Resolved]
  - Epinephrine increased [Recovered/Resolved]
